FAERS Safety Report 6752051-X (Version None)
Quarter: 2010Q2

REPORT INFORMATION
  Report Type: 
  Country: None (occurrence: None)
  Receive Date: 20100526
  Receipt Date: 20100401
  Transmission Date: 20101027
  Serious: No
  Sender: FDA-Public Use
  Company Number: 306904

PATIENT
  Age: 63 Year
  Sex: Male

DRUGS (5)
  1. VICTOZA [Suspect]
     Indication: TYPE 2 DIABETES MELLITUS
     Dosage: SUBCUTANEOUS
     Route: 058
     Dates: start: 20100331
  2. LANTUS [Suspect]
     Indication: TYPE 2 DIABETES MELLITUS
     Dosage: SUBCUTANEOUS
     Route: 058
  3. NOVOLOG [Concomitant]
  4. JANUVIA [Concomitant]
  5. GINGER /01646602/ (ZINGIBER OFFICINALE RHIZOME) [Concomitant]

REACTIONS (2)
  - BLOOD GLUCOSE DECREASED [None]
  - DYSGEUSIA [None]
